FAERS Safety Report 4937116-7 (Version None)
Quarter: 2006Q1

REPORT INFORMATION
  Report Type: 
  Country: None (occurrence: None)
  Receive Date: 20060309
  Receipt Date: 20051121
  Transmission Date: 20060701
  Serious: Yes (Hospitalization)
  Sender: FDA-Public Use
  Company Number: FR-BOEHRINGER INGELHEIM PHARMACEUTICALS, INC.-2005-FF-00845FF

PATIENT
  Sex: Female
  Weight: 55 kg

DRUGS (6)
  1. TIPRANAVIR + RITONAVIR CO-ADMIN [Suspect]
     Indication: HIV INFECTION
     Dosage: TPV/RTV: 500/200 MG B.I.D.
     Route: 048
     Dates: start: 20050629, end: 20051115
  2. FUZEON [Suspect]
     Indication: HIV INFECTION
     Route: 058
     Dates: start: 20050629, end: 20051025
  3. EFFEXOR [Concomitant]
     Indication: DEPRESSION
     Route: 048
  4. NEURONTIN [Concomitant]
     Indication: DEPRESSION
     Route: 048
  5. RIVOTRIL [Concomitant]
     Indication: DEPRESSION
     Route: 048
  6. LARGACTIL [Concomitant]
     Indication: DEPRESSION
     Route: 048

REACTIONS (4)
  - ASTHENIA [None]
  - DYSPNOEA [None]
  - EOSINOPHILIA [None]
  - PRURITUS [None]
